FAERS Safety Report 17760469 (Version 1)
Quarter: 2020Q2

REPORT INFORMATION
  Report Type: Spontaneous
  Country: US (occurrence: US)
  Receive Date: 20200508
  Receipt Date: 20200508
  Transmission Date: 20200714
  Serious: Yes (Death)
  Sender: FDA-Public Use
  Company Number: NVSC2020US124501

PATIENT
  Age: 63 Year
  Sex: Male

DRUGS (2)
  1. PEMBROLIZUMAB. [Suspect]
     Active Substance: PEMBROLIZUMAB
     Indication: METASTASES TO MENINGES
     Dosage: UNK
     Route: 062
  2. METHOTREXATE. [Suspect]
     Active Substance: METHOTREXATE
     Indication: METASTASES TO MENINGES
     Dosage: UNK, Q2W
     Route: 037

REACTIONS (3)
  - Malignant neoplasm progression [Fatal]
  - Product use in unapproved indication [Unknown]
  - Metastases to meninges [Fatal]
